FAERS Safety Report 9913519 (Version 2)
Quarter: 2014Q1

REPORT INFORMATION
  Report Type: Spontaneous
  Country: US (occurrence: US)
  Receive Date: 20140220
  Receipt Date: 20140307
  Transmission Date: 20141002
  Serious: Yes (Other)
  Sender: FDA-Public Use
  Company Number: US-PURDUE-USA-2014-0111318

PATIENT
  Sex: Male

DRUGS (2)
  1. OXYCONTIN (NDA 22-272) [Suspect]
     Indication: CERVICAL VERTEBRAL FRACTURE
     Dosage: UNKNOWN
  2. OXYCODONE HYDROCHLORIDE (SIMILAR TO NDA 22-272) [Suspect]
     Indication: CERVICAL VERTEBRAL FRACTURE
     Dosage: UNKNOWN

REACTIONS (1)
  - Cervical vertebral fracture [Unknown]
